FAERS Safety Report 19266902 (Version 4)
Quarter: 2021Q4

REPORT INFORMATION
  Report Type: Spontaneous
  Country: DE (occurrence: DE)
  Receive Date: 20210518
  Receipt Date: 20211221
  Transmission Date: 20220304
  Serious: Yes (Congenital Anomaly, Other)
  Sender: FDA-Public Use
  Company Number: DE-EXELTIS PHARMACEUTICAL HOLDING, S.L.-2105DE00543

PATIENT
  Sex: Male

DRUGS (3)
  1. PROGESTERONE [Suspect]
     Active Substance: PROGESTERONE
     Indication: Progesterone decreased
     Dosage: 1 DOSAGE FORM, QD
     Route: 064
     Dates: start: 20200801, end: 20201001
  2. FOLIC ACID\VITAMINS [Concomitant]
     Active Substance: FOLIC ACID\VITAMINS
     Dosage: UNTIL GESTATION WEEK 12
     Route: 064
  3. MINERALS\VITAMINS [Concomitant]
     Active Substance: MINERALS\VITAMINS
     Dosage: FROM GESTATION WEEK 13
     Route: 064

REACTIONS (3)
  - Renal aplasia [Recovered/Resolved with Sequelae]
  - Oesophageal atresia [Recovered/Resolved with Sequelae]
  - Foetal exposure during pregnancy [Unknown]

NARRATIVE: CASE EVENT DATE: 20210201
